FAERS Safety Report 13248025 (Version 2)
Quarter: 2017Q1

REPORT INFORMATION
  Report Type: Report from Study
  Country: US (occurrence: US)
  Receive Date: 20170217
  Receipt Date: 20170308
  Transmission Date: 20170428
  Serious: Yes (Hospitalization, Other)
  Sender: FDA-Public Use
  Company Number: US-MALLINCKRODT-T201700440

PATIENT
  Sex: Female
  Weight: 88 kg

DRUGS (16)
  1. LEVOTHYROXINE. [Concomitant]
     Active Substance: LEVOTHYROXINE
  2. DICYCLOMINE [Concomitant]
     Active Substance: DICYCLOMINE HYDROCHLORIDE
  3. REPOSITORY CORTICOTROPIN INJECTION [Suspect]
     Active Substance: CORTICOTROPIN
     Indication: RHEUMATOID ARTHRITIS
     Dosage: 80 UNITS / 1 ML, 2 TIMES PER WEEK, (WEDNESDAY AND SATURDAY)
     Route: 058
     Dates: start: 20160810
  4. FUROSEMIDE. [Concomitant]
     Active Substance: FUROSEMIDE
  5. SERTRALINE [Concomitant]
     Active Substance: SERTRALINE HYDROCHLORIDE
  6. KLOR-CON [Concomitant]
     Active Substance: POTASSIUM CHLORIDE
  7. RAYOS [Concomitant]
     Active Substance: PREDNISONE
  8. ALPRAZOLAM. [Concomitant]
     Active Substance: ALPRAZOLAM
  9. GABAPENTIN. [Concomitant]
     Active Substance: GABAPENTIN
  10. REPOSITORY CORTICOTROPIN INJECTION [Suspect]
     Active Substance: CORTICOTROPIN
     Indication: PSORIATIC ARTHROPATHY
  11. FOLIC ACID. [Concomitant]
     Active Substance: FOLIC ACID
  12. SULFASALAZINE. [Concomitant]
     Active Substance: SULFASALAZINE
  13. TRAMADOL. [Concomitant]
     Active Substance: TRAMADOL
  14. PANTOPRAZOLE [Concomitant]
     Active Substance: PANTOPRAZOLE SODIUM
  15. STELARA [Concomitant]
     Active Substance: USTEKINUMAB
  16. CARVEDILOL. [Concomitant]
     Active Substance: CARVEDILOL

REACTIONS (3)
  - Drug effect decreased [Unknown]
  - Back pain [Unknown]
  - Influenza [Unknown]
